FAERS Safety Report 6356828-4 (Version None)
Quarter: 2009Q3

REPORT INFORMATION
  Report Type: 
  Country: None (occurrence: None)
  Receive Date: 20090910
  Receipt Date: 20090910
  Transmission Date: 20100115
  Serious: No
  Sender: FDA-Public Use
  Company Number: None

PATIENT
  Age: 65 Year
  Sex: Female
  Weight: 62.1428 kg

DRUGS (2)
  1. VIDAZA [Suspect]
     Indication: MYELODYSPLASTIC SYNDROME
     Dosage: 130MG DAILY IV
     Route: 042
     Dates: start: 20090806, end: 20090810
  2. VIDAZA [Suspect]
     Indication: MYELODYSPLASTIC SYNDROME
     Dosage: 130MG DAILY IV
     Route: 042
     Dates: start: 20090908, end: 20090909

REACTIONS (4)
  - RASH PRURITIC [None]
  - SCAB [None]
  - SECRETION DISCHARGE [None]
  - URTICARIA [None]
